FAERS Safety Report 14424428 (Version 1)
Quarter: 2018Q1

REPORT INFORMATION
  Report Type: Spontaneous
  Country: HR (occurrence: HR)
  Receive Date: 20180123
  Receipt Date: 20180123
  Transmission Date: 20180509
  Serious: Yes (Hospitalization, Other)
  Sender: FDA-Public Use
  Company Number: HR-ASTRAZENECA-2018SE07504

PATIENT
  Age: 80 Year
  Sex: Female

DRUGS (7)
  1. SYMBICORT [Concomitant]
     Active Substance: BUDESONIDE\FORMOTEROL FUMARATE DIHYDRATE
     Route: 055
  2. RIVOTRIL [Concomitant]
     Active Substance: CLONAZEPAM
     Route: 048
  3. CLOPIDOGREL [Concomitant]
     Active Substance: CLOPIDOGREL BISULFATE
     Route: 048
  4. CONTROLOC [Concomitant]
     Active Substance: PANTOPRAZOLE SODIUM
     Route: 048
  5. ROSUVASTATIN CALCIUM. [Suspect]
     Active Substance: ROSUVASTATIN CALCIUM
     Indication: PROPHYLAXIS
     Route: 048
     Dates: end: 2015
  6. LADIOMIL [Suspect]
     Active Substance: MAPROTILINE HYDROCHLORIDE
     Indication: INSOMNIA
     Route: 048
     Dates: end: 2015
  7. CODEINE PHOSPHATE [Concomitant]
     Active Substance: CODEINE PHOSPHATE
     Route: 048

REACTIONS (2)
  - Ileus paralytic [Recovered/Resolved]
  - Rhabdomyolysis [Recovered/Resolved]

NARRATIVE: CASE EVENT DATE: 20150430
